FAERS Safety Report 4929070-9 (Version None)
Quarter: 2006Q1

REPORT INFORMATION
  Report Type: 
  Country: None (occurrence: None)
  Receive Date: 20060301
  Receipt Date: 20050318
  Transmission Date: 20060701
  Serious: Yes (Hospitalization)
  Sender: FDA-Public Use
  Company Number: US-MERCK-0503USA03837

PATIENT
  Age: 66 Year
  Sex: Female
  Weight: 73 kg

DRUGS (2)
  1. VIOXX [Suspect]
     Indication: ARTHRITIS
     Route: 048
     Dates: start: 20040101, end: 20040927
  2. VIOXX [Suspect]
     Route: 048
     Dates: start: 20040101, end: 20040927

REACTIONS (3)
  - ARTERIAL OCCLUSIVE DISEASE [None]
  - CEREBROVASCULAR ACCIDENT [None]
  - RENAL FAILURE [None]
